FAERS Safety Report 20374001 (Version 1)
Quarter: 2022Q1

REPORT INFORMATION
  Report Type: Spontaneous
  Country: US (occurrence: None)
  Receive Date: 20220124
  Receipt Date: 20220124
  Transmission Date: 20220423
  Serious: Yes (Hospitalization)
  Sender: FDA-Public Use
  Company Number: None

PATIENT
  Age: 79 Year
  Weight: 89 kg

DRUGS (2)
  1. CASIRIVIMAB [Suspect]
     Active Substance: CASIRIVIMAB
     Indication: COVID-19 prophylaxis
     Dosage: OTHER FREQUENCY : ONCE;?
     Route: 040
     Dates: start: 20211216, end: 20211216
  2. IMDEVIMAB [Suspect]
     Active Substance: IMDEVIMAB
     Indication: COVID-19 prophylaxis
     Dosage: OTHER FREQUENCY : ONCE;?
     Route: 040
     Dates: start: 20211216, end: 20211216

REACTIONS (6)
  - Acute respiratory failure [None]
  - Occupational exposure to SARS-CoV-2 [None]
  - Toxicity to various agents [None]
  - Dyspnoea [None]
  - Atrial fibrillation [None]
  - Organising pneumonia [None]

NARRATIVE: CASE EVENT DATE: 20211221
